FAERS Safety Report 9821426 (Version 2)
Quarter: 2014Q1

REPORT INFORMATION
  Report Type: Spontaneous
  Country: US (occurrence: US)
  Receive Date: 20140116
  Receipt Date: 20140116
  Transmission Date: 20141002
  Serious: No
  Sender: FDA-Public Use
  Company Number: US-GILEAD-2011-0035454

PATIENT
  Sex: Male

DRUGS (2)
  1. LETAIRIS [Suspect]
     Indication: PULMONARY ARTERIAL HYPERTENSION
     Route: 048
     Dates: start: 20091223
  2. LETAIRIS [Suspect]
     Indication: ATRIAL SEPTAL DEFECT

REACTIONS (3)
  - Unevaluable event [Unknown]
  - Drug ineffective [Unknown]
  - Cardiac disorder [Unknown]
